FAERS Safety Report 9130099 (Version 9)
Quarter: 2014Q1

REPORT INFORMATION
  Report Type: Spontaneous
  Country: US (occurrence: US)
  Receive Date: 20130228
  Receipt Date: 20140124
  Transmission Date: 20141002
  Serious: Yes (Life-Threatening)
  Sender: FDA-Public Use
  Company Number: US-ROCHE-1194393

PATIENT
  Age: 37 Year
  Sex: Female
  Weight: 70.82 kg

DRUGS (35)
  1. XOLAIR [Suspect]
     Indication: ASTHMA
     Dosage: 1.2 CC X 2 + 0.6 CC X 1 ; LAST DOSE PRIOR TO SAE ON 13/MAR/2011 (MOST RECENT DOSE: 27/APR/2011)
     Route: 065
  2. DIAZEPAM [Concomitant]
     Route: 048
     Dates: start: 2008
  3. ADVAIR [Concomitant]
     Indication: ASTHMA
     Dosage: 500/50
     Route: 048
  4. SINGULAIR [Concomitant]
     Indication: ASTHMA
     Route: 048
     Dates: start: 1978
  5. EFFEXOR XR [Concomitant]
     Indication: DEPRESSION
     Route: 048
     Dates: start: 2004
  6. PROTONIX (UNITED STATES) [Concomitant]
     Indication: GASTROOESOPHAGEAL REFLUX DISEASE
     Route: 048
  7. PREDNISONE [Concomitant]
     Indication: ASTHMA
     Route: 048
     Dates: start: 1993
  8. SPIRIVA [Concomitant]
     Dosage: 1 PUFF QD
     Route: 045
  9. CLARITIN [Concomitant]
     Route: 048
  10. ATROVENT [Concomitant]
     Indication: ASTHMA
     Dosage: INHALER
     Route: 065
     Dates: start: 1998
  11. RISPERDAL [Concomitant]
     Indication: INSOMNIA
     Route: 048
     Dates: start: 2005
  12. NASONEX [Concomitant]
     Dosage: 25 QUIRTS
     Route: 045
  13. ZYRTEC [Concomitant]
     Route: 065
     Dates: start: 20121209
  14. ALLEGRA [Concomitant]
     Indication: HYPERSENSITIVITY
     Route: 048
     Dates: start: 20121209
  15. CALTRATE + D [Concomitant]
     Dosage: 600/4000 MG
     Route: 048
     Dates: start: 2011
  16. BENADRYL (UNITED STATES) [Concomitant]
     Route: 048
  17. ASTELIN [Concomitant]
     Indication: HYPERSENSITIVITY
     Dosage: 137 MCG/ 1 SPRAY PER NOSTRIL
     Route: 065
     Dates: start: 2011
  18. CARAFATE [Concomitant]
     Indication: ULCER
     Dosage: 1 MG/10 ML
     Route: 048
     Dates: start: 2008
  19. CETRIZINE [Concomitant]
     Indication: HYPERSENSITIVITY
     Route: 048
     Dates: start: 20121209
  20. DEXILANT [Concomitant]
     Indication: GASTROOESOPHAGEAL REFLUX DISEASE
     Dosage: 60 MG/2 TAB
     Route: 048
     Dates: start: 2012
  21. DOXYCYCLINE [Concomitant]
     Indication: ROSACEA
     Route: 048
     Dates: start: 201301
  22. GABAPENTIN [Concomitant]
     Indication: ROSACEA
     Route: 048
     Dates: start: 201212
  23. HYDROCORTISONE [Concomitant]
     Indication: HYPERSENSITIVITY
     Dosage: 1.5 MG/5 ML
     Route: 048
     Dates: start: 2010
  24. IPRATROPIUM BROMIDE NEBULISER [Concomitant]
     Indication: ASTHMA
     Route: 050
     Dates: start: 2003
  25. METRONIDAZOLE [Concomitant]
     Indication: ROSACEA
     Route: 050
     Dates: start: 2011
  26. OXAZEPAM [Concomitant]
     Indication: ANXIETY
     Route: 048
     Dates: start: 2008
  27. QVAR [Concomitant]
     Indication: ASTHMA
     Route: 050
     Dates: start: 201205
  28. CLARITHROMYCIN [Concomitant]
     Indication: LUNG INFECTION
     Route: 048
     Dates: start: 201210
  29. SYMBICORT [Concomitant]
     Indication: ASTHMA
     Dosage: 160 MCG 2 PUFFS
     Route: 050
     Dates: start: 20120107
  30. THEOPHYLLINE [Concomitant]
     Indication: ASTHMA
     Route: 048
     Dates: start: 2011
  31. TRAMADOL [Concomitant]
     Indication: PAIN
     Route: 048
     Dates: start: 20121222, end: 20130226
  32. IBUPROFEN [Concomitant]
     Indication: PAIN
     Route: 048
     Dates: start: 20121222, end: 20130226
  33. VERAMYST [Concomitant]
     Indication: HYPERSENSITIVITY
     Dosage: 2.75 MCG/2 PUFFS PER NOSTRIL
     Route: 050
     Dates: start: 201204
  34. ASTELIN [Concomitant]
     Indication: HYPERSENSITIVITY
     Dosage: 137 MCG/1 SPRAY PER NOSTRIL
     Route: 050
     Dates: start: 2011
  35. ASPIRIN [Concomitant]
     Indication: ANTICOAGULANT THERAPY
     Route: 048
     Dates: start: 20130122

REACTIONS (2)
  - Bronchitis [Unknown]
  - Anaphylactic reaction [Unknown]
